FAERS Safety Report 25593799 (Version 1)
Quarter: 2025Q3

REPORT INFORMATION
  Report Type: Spontaneous
  Country: US (occurrence: US)
  Receive Date: 20250723
  Receipt Date: 20250723
  Transmission Date: 20251020
  Serious: No
  Sender: ALEXION PHARMACEUTICALS
  Company Number: US-AstraZeneca-CH-00913902A

PATIENT
  Age: 66 Year
  Sex: Male

DRUGS (3)
  1. BREZTRI [Suspect]
     Active Substance: BUDESONIDE\FORMOTEROL\GLYCOPYRROLATE
     Indication: Chronic obstructive pulmonary disease
  2. SYMBICORT [Suspect]
     Active Substance: BUDESONIDE\FORMOTEROL FUMARATE DIHYDRATE
  3. ALBUTEROL [Concomitant]
     Active Substance: ALBUTEROL
     Route: 065

REACTIONS (3)
  - Drug ineffective [Unknown]
  - Product dose omission issue [Unknown]
  - Chronic obstructive pulmonary disease [Unknown]
